FAERS Safety Report 12821927 (Version 1)
Quarter: 2016Q4

REPORT INFORMATION
  Report Type: Report from Study
  Country: US (occurrence: US)
  Receive Date: 20161007
  Receipt Date: 20161007
  Transmission Date: 20170207
  Serious: Yes (Hospitalization, Other)
  Sender: FDA-Public Use
  Company Number: US-ROCHE-1490996

PATIENT
  Age: 66 Year
  Sex: Female
  Weight: 82.4 kg

DRUGS (5)
  1. BEVACIZUMAB [Suspect]
     Active Substance: BEVACIZUMAB
     Indication: MALIGNANT PERITONEAL NEOPLASM
     Dosage: LAST DOSE PRIOR TO SAE: 02/SEP/2014
     Route: 042
  2. VELIPARIB [Suspect]
     Active Substance: VELIPARIB
     Indication: MALIGNANT PERITONEAL NEOPLASM
     Dosage: LAST DOSE PRIOR TO SAE: 17/SEP/2014
     Route: 048
     Dates: start: 20140512
  3. CISPLATIN. [Suspect]
     Active Substance: CISPLATIN
     Indication: MALIGNANT PERITONEAL NEOPLASM
     Route: 033
     Dates: start: 20140512
  4. PACLITAXEL. [Suspect]
     Active Substance: PACLITAXEL
     Indication: MALIGNANT PERITONEAL NEOPLASM
     Route: 042
     Dates: start: 20140512
  5. PACLITAXEL. [Suspect]
     Active Substance: PACLITAXEL
     Route: 033

REACTIONS (16)
  - Hyperglycaemia [Not Recovered/Not Resolved]
  - Respiratory failure [Unknown]
  - Peripheral sensory neuropathy [Not Recovered/Not Resolved]
  - Embolism [Recovered/Resolved]
  - Anal haemorrhage [Unknown]
  - Nausea [Recovered/Resolved]
  - Neutrophil count decreased [Unknown]
  - Abdominal pain [Recovered/Resolved]
  - Pleural effusion [Recovered/Resolved]
  - Hyperglycaemia [Unknown]
  - Stomatitis [Unknown]
  - Pain in extremity [Unknown]
  - Rectal haemorrhage [Unknown]
  - Oropharyngeal pain [Unknown]
  - Embolism [Unknown]
  - Hypertension [Unknown]

NARRATIVE: CASE EVENT DATE: 20140804
